FAERS Safety Report 6278551-7 (Version None)
Quarter: 2009Q3

REPORT INFORMATION
  Report Type: 
  Country: None (occurrence: None)
  Receive Date: 20090722
  Receipt Date: 20080819
  Transmission Date: 20100115
  Serious: No
  Sender: FDA-Public Use
  Company Number: US-BAUSCH-2008BL003665

PATIENT
  Age: 65 Year
  Sex: Male

DRUGS (1)
  1. OPCON-A [Suspect]
     Indication: EYE PRURITUS
     Route: 047
     Dates: start: 20080201, end: 20080801

REACTIONS (2)
  - DRUG INEFFECTIVE [None]
  - EYE IRRITATION [None]
